FAERS Safety Report 7570235-8 (Version None)
Quarter: 2011Q2

REPORT INFORMATION
  Report Type: 
  Country: None (occurrence: None)
  Receive Date: 20110620
  Receipt Date: 20110610
  Transmission Date: 20111010
  Serious: Yes (Hospitalization, Other)
  Sender: FDA-Public Use
  Company Number: 2011AT000195

PATIENT
  Age: 33 Year
  Sex: Male
  Weight: 102.9665 kg

DRUGS (3)
  1. TESTOSTERONE [Suspect]
     Indication: SUBSTANCE USE
     Dosage: 150 MG;QW;IM
     Route: 030
  2. SUSTANON /01129501/ [Suspect]
     Indication: SUBSTANCE USE
     Dosage: 750 MG;QW;IM
     Route: 030
  3. TRENBOLONE [Suspect]
     Indication: SUBSTANCE USE
     Dosage: 2 ML;Q4DAYS;IM
     Route: 030

REACTIONS (2)
  - DEHYDRATION [None]
  - DIABETES MELLITUS [None]
